FAERS Safety Report 26010933 (Version 1)
Quarter: 2025Q4

REPORT INFORMATION
  Report Type: Spontaneous
  Country: US (occurrence: US)
  Receive Date: 20251107
  Receipt Date: 20251107
  Transmission Date: 20260119
  Serious: No
  Sender: AMGEN
  Company Number: US-AMGEN-USASP2025218950

PATIENT
  Age: 5 Year

DRUGS (1)
  1. BLINCYTO [Suspect]
     Active Substance: BLINATUMOMAB
     Indication: Acute lymphocytic leukaemia
     Dosage: UNK (DOSE ORDERED: 2X 35MCG VIALS; DOSE REQUESTED: 2X 35MCG VIALS)
     Route: 065

REACTIONS (1)
  - Underweight [Unknown]

NARRATIVE: CASE EVENT DATE: 20251006
